FAERS Safety Report 7006363-5 (Version None)
Quarter: 2010Q3

REPORT INFORMATION
  Report Type: 
  Country: None (occurrence: None)
  Receive Date: 20100921
  Receipt Date: 20100913
  Transmission Date: 20110219
  Serious: Yes (Hospitalization)
  Sender: FDA-Public Use
  Company Number: US-US-EMD SERONO, INC.-7017458

PATIENT
  Sex: Male

DRUGS (12)
  1. NOVANTRONE [Suspect]
     Indication: PROSTATE CANCER
     Dates: start: 20090309, end: 20090330
  2. IXEMPRA KIT [Suspect]
     Indication: PROSTATE CANCER
     Dates: start: 20090309, end: 20090330
  3. PREDNISONE [Suspect]
     Indication: PROSTATE CANCER
     Route: 048
     Dates: start: 20090309, end: 20090408
  4. NEULASTA [Suspect]
     Indication: PROSTATE CANCER
     Route: 058
     Dates: start: 20090309, end: 20090331
  5. ASPIRIN [Concomitant]
  6. CELEXA [Concomitant]
  7. COMPAZINE [Concomitant]
  8. LUPRON [Concomitant]
  9. NEURONTIN [Concomitant]
  10. NORVASC [Concomitant]
  11. VICODIN [Concomitant]
  12. ZIAC [Concomitant]

REACTIONS (4)
  - DIARRHOEA [None]
  - LYMPHOPENIA [None]
  - PNEUMONIA [None]
  - VOMITING [None]
